FAERS Safety Report 7678284-6 (Version None)
Quarter: 2011Q3

REPORT INFORMATION
  Report Type: 
  Country: None (occurrence: None)
  Receive Date: 20110811
  Receipt Date: 20110805
  Transmission Date: 20111222
  Serious: Yes (Death)
  Sender: FDA-Public Use
  Company Number: PHEH2011US00781

PATIENT
  Sex: Female
  Weight: 56 kg

DRUGS (1)
  1. EXJADE [Suspect]
     Dosage: 2000 MG, QD
     Route: 048
     Dates: end: 20110706

REACTIONS (1)
  - ACUTE LYMPHOCYTIC LEUKAEMIA [None]
